FAERS Safety Report 8959316 (Version 4)
Quarter: 2013Q1

REPORT INFORMATION
  Report Type: Report from Study
  Country: US (occurrence: US)
  Receive Date: 20121212
  Receipt Date: 20130318
  Transmission Date: 20140127
  Serious: Yes (Hospitalization)
  Sender: FDA-Public Use
  Company Number: US-ROCHE-1165593

PATIENT
  Age: 44 None
  Sex: Female
  Weight: 110.5 kg

DRUGS (17)
  1. XELODA [Suspect]
     Indication: BREAST CANCER METASTATIC
     Route: 048
     Dates: start: 20121102, end: 201212
  2. XELODA [Suspect]
     Indication: HEPATIC CANCER
     Route: 048
     Dates: start: 201212, end: 201301
  3. XELODA [Suspect]
     Route: 048
     Dates: start: 201301
  4. XELODA [Suspect]
     Route: 048
  5. PERJETA [Suspect]
     Indication: BREAST CANCER METASTATIC
     Route: 042
     Dates: start: 201211
  6. HERCEPTIN [Suspect]
     Indication: BREAST CANCER METASTATIC
     Route: 042
     Dates: start: 200910
  7. XGEVA [Concomitant]
     Indication: BREAST CANCER METASTATIC
     Route: 065
     Dates: start: 201205
  8. ZOLADEX [Concomitant]
     Indication: BREAST CANCER METASTATIC
     Route: 058
     Dates: start: 201110
  9. CELEBREX [Concomitant]
     Indication: PAIN
     Route: 048
  10. DEXMETHYLPHENIDATE HYDROCHLORIDE [Concomitant]
     Indication: FATIGUE
     Route: 048
  11. ZOFRAN [Concomitant]
     Indication: NAUSEA
     Dosage: 4-8 MG
     Route: 048
  12. ZOFRAN [Concomitant]
     Indication: VOMITING
  13. FENTANYL [Concomitant]
     Indication: PAIN
     Route: 062
  14. DILAUDID [Concomitant]
     Indication: PAIN
     Route: 048
  15. COMPAZINE [Concomitant]
     Indication: NAUSEA
     Route: 048
  16. COMPAZINE [Concomitant]
     Indication: VOMITING
  17. ATIVAN [Concomitant]
     Indication: ANXIETY
     Route: 048

REACTIONS (23)
  - Abdominal distension [Recovering/Resolving]
  - Pain [Recovering/Resolving]
  - Diarrhoea [Not Recovered/Not Resolved]
  - Oral mucosal erythema [Recovering/Resolving]
  - Dry skin [Not Recovered/Not Resolved]
  - Oral pain [Recovering/Resolving]
  - Palmar-plantar erythrodysaesthesia syndrome [Recovering/Resolving]
  - Muscle spasms [Not Recovered/Not Resolved]
  - Muscle spasms [Not Recovered/Not Resolved]
  - Muscle spasms [Not Recovered/Not Resolved]
  - Back pain [Not Recovered/Not Resolved]
  - Arthralgia [Not Recovered/Not Resolved]
  - Chest pain [Not Recovered/Not Resolved]
  - Skin exfoliation [Recovering/Resolving]
  - Skin exfoliation [Recovering/Resolving]
  - Dry skin [Not Recovered/Not Resolved]
  - Dry skin [Not Recovered/Not Resolved]
  - Neuropathy peripheral [Recovered/Resolved]
  - Fatigue [Not Recovered/Not Resolved]
  - Rash macular [Recovering/Resolving]
  - Rash [Recovering/Resolving]
  - Rash pustular [Recovering/Resolving]
  - Oral pain [Recovering/Resolving]
